FAERS Safety Report 9702066 (Version 1)
Quarter: 2013Q4

REPORT INFORMATION
  Report Type: Spontaneous
  Country: US (occurrence: None)
  Receive Date: 20131120
  Receipt Date: 20131120
  Transmission Date: 20140711
  Serious: Yes (Disabling)
  Sender: FDA-Public Use
  Company Number: 2013-US-003111

PATIENT
  Age: 37 Year
  Sex: Male

DRUGS (2)
  1. XYREM [Suspect]
     Indication: NARCOLEPSY
     Route: 048
     Dates: start: 201201, end: 2012
  2. XYREM [Suspect]
     Route: 048
     Dates: start: 201201, end: 2012

REACTIONS (1)
  - Disability [None]
